FAERS Safety Report 24114549 (Version 3)
Quarter: 2024Q4

REPORT INFORMATION
  Report Type: Spontaneous
  Country: PL (occurrence: PL)
  Receive Date: 20240720
  Receipt Date: 20241108
  Transmission Date: 20250114
  Serious: Yes (Other)
  Sender: AMGEN
  Company Number: PL-AMGEN-POLSP2024142293

PATIENT
  Age: 73 Year
  Sex: Female

DRUGS (9)
  1. LUMAKRAS [Suspect]
     Active Substance: SOTORASIB
     Indication: Non-small cell lung cancer
     Dosage: UNK, FIRST CYCLE DOSE DISPENSED 240X120MG NO.
     Route: 065
     Dates: start: 20231011, end: 2023
  2. LUMAKRAS [Suspect]
     Active Substance: SOTORASIB
     Dosage: UNK, SECOND CYCLE NO. 632 638
     Route: 065
     Dates: start: 20231108, end: 2023
  3. LUMAKRAS [Suspect]
     Active Substance: SOTORASIB
     Dosage: UNK, THIRD CYCLE NO. 638 003
     Route: 065
     Dates: start: 20231206
  4. LUMAKRAS [Suspect]
     Active Substance: SOTORASIB
     Dosage: UNK, FOURTH CYCLE NO. 643 220
     Route: 065
     Dates: start: 20240103, end: 202401
  5. LUMAKRAS [Suspect]
     Active Substance: SOTORASIB
     Dosage: UNK, FIFTH CYCLE, NO 643 220
     Route: 065
     Dates: start: 20240131, end: 2024
  6. LUMAKRAS [Suspect]
     Active Substance: SOTORASIB
     Dosage: UNK, SIXTH CYCLE NO. 655 757
     Route: 065
     Dates: start: 20240228, end: 2024
  7. LUMAKRAS [Suspect]
     Active Substance: SOTORASIB
     Dosage: UNK, SEVENTH CYCLE NO. 663 064
     Route: 065
     Dates: start: 20240327, end: 2024
  8. LUMAKRAS [Suspect]
     Active Substance: SOTORASIB
     Dosage: UNK, EIGHT CYCLE NO. 668 717
     Route: 065
     Dates: start: 20240424, end: 2024
  9. LUMAKRAS [Suspect]
     Active Substance: SOTORASIB
     Dosage: UNK, NINTH CYCLE NO. 674 740
     Route: 065
     Dates: start: 20240522

REACTIONS (4)
  - Transient ischaemic attack [Recovered/Resolved]
  - Hypertension [Recovered/Resolved]
  - Palpitations [Recovered/Resolved]
  - Therapy partial responder [Unknown]

NARRATIVE: CASE EVENT DATE: 20240515
